FAERS Safety Report 13463788 (Version 1)
Quarter: 2017Q2

REPORT INFORMATION
  Report Type: Spontaneous
  Country: US (occurrence: US)
  Receive Date: 20170420
  Receipt Date: 20170420
  Transmission Date: 20170830
  Serious: Yes (Other)
  Sender: FDA-Public Use
  Company Number: US-ROCHE-107890

PATIENT
  Age: 16 Year
  Sex: Male
  Weight: 70.3 kg

DRUGS (3)
  1. ACCUTANE [Suspect]
     Active Substance: ISOTRETINOIN
     Indication: ACNE CYSTIC
     Dosage: DURATION TOGETHER WITH THE SECOND THERAPY: FIVE MONTHS.
     Route: 048
     Dates: start: 19981010, end: 19990207
  2. ACCUTANE [Suspect]
     Active Substance: ISOTRETINOIN
     Dosage: DURATION TOGETHER WITH THE FIRST THERAPY: FIVE MONTHS.
     Route: 048
     Dates: start: 19990208, end: 199903
  3. ACCUTANE [Suspect]
     Active Substance: ISOTRETINOIN
     Route: 048
     Dates: start: 200101, end: 200106

REACTIONS (16)
  - Chapped lips [Recovering/Resolving]
  - Erythema [Not Recovered/Not Resolved]
  - Dry skin [Recovering/Resolving]
  - Folliculitis [Not Recovered/Not Resolved]
  - Colitis ulcerative [Unknown]
  - Lipoma [Not Recovered/Not Resolved]
  - Mood altered [Not Recovered/Not Resolved]
  - Erythema [Recovering/Resolving]
  - Flushing [Recovering/Resolving]
  - Alopecia [Not Recovered/Not Resolved]
  - Crying [None]
  - Lymphadenopathy [Not Recovered/Not Resolved]
  - Lip dry [Recovering/Resolving]
  - Scar [Not Recovered/Not Resolved]
  - Dandruff [Recovering/Resolving]
  - Fatigue [Not Recovered/Not Resolved]

NARRATIVE: CASE EVENT DATE: 19981017
